FAERS Safety Report 6192705-X (Version None)
Quarter: 2009Q2

REPORT INFORMATION
  Report Type: 
  Country: None (occurrence: None)
  Receive Date: 20090518
  Receipt Date: 20090508
  Transmission Date: 20091009
  Serious: Yes (Other)
  Sender: FDA-Public Use
  Company Number: US-AMGEN-QUU344980

PATIENT
  Sex: Male
  Weight: 82.6 kg

DRUGS (17)
  1. ARANESP [Suspect]
     Indication: ANAEMIA OF MALIGNANT DISEASE
     Dates: start: 20081204
  2. PROCRIT [Suspect]
     Indication: ANAEMIA OF MALIGNANT DISEASE
     Dates: start: 20080516
  3. NEUPOGEN [Concomitant]
     Indication: DRUG USE FOR UNKNOWN INDICATION
     Dates: start: 20090409
  4. VITAMIN B-12 [Concomitant]
     Route: 048
  5. VITAMIN K [Concomitant]
  6. DIFLUCAN [Concomitant]
     Route: 048
  7. DECADRON [Concomitant]
     Route: 048
     Dates: start: 20080214
  8. ANDROGEL [Concomitant]
     Route: 062
     Dates: start: 20080604
  9. GLUTAMIC ACID [Concomitant]
     Route: 048
  10. KETOCONAZOLE [Concomitant]
     Route: 061
  11. REVLIMID [Concomitant]
     Dates: start: 20080128
  12. FOLIC ACID [Concomitant]
     Route: 048
  13. LOVAZA [Concomitant]
     Route: 048
  14. CHROMIUM [Concomitant]
     Route: 048
  15. CALCIUM WITH VITAMIN D [Concomitant]
     Route: 048
  16. VITAMIN E [Concomitant]
     Route: 048
  17. VITAMIN B COMPLEX CAP [Concomitant]
     Route: 048

REACTIONS (2)
  - DRUG INEFFECTIVE [None]
  - RETICULOCYTE COUNT DECREASED [None]
